FAERS Safety Report 7059798-9 (Version None)
Quarter: 2010Q4

REPORT INFORMATION
  Report Type: 
  Country: None (occurrence: None)
  Receive Date: 20101025
  Receipt Date: 20101015
  Transmission Date: 20110411
  Serious: Yes (Hospitalization, Other)
  Sender: FDA-Public Use
  Company Number: US-PFIZER INC-2010132104

PATIENT
  Sex: Female

DRUGS (7)
  1. DEPO-PROVERA [Suspect]
     Indication: OFF LABEL USE
     Dosage: 150 MG, UNK
     Dates: start: 20100928
  2. DEPO-PROVERA [Suspect]
     Indication: MENOMETRORRHAGIA
  3. SIMVASTATIN [Concomitant]
     Indication: BLOOD CHOLESTEROL INCREASED
     Dosage: UNK
  4. LEXAPRO [Concomitant]
     Dosage: UNK
  5. METOPROLOL [Concomitant]
     Dosage: UNK
  6. AMBIEN [Concomitant]
     Dosage: UNK
  7. XANAX [Concomitant]
     Dosage: UNK

REACTIONS (7)
  - ACTIVITIES OF DAILY LIVING IMPAIRED [None]
  - ANXIETY [None]
  - DIZZINESS [None]
  - FATIGUE [None]
  - FEELING ABNORMAL [None]
  - LOSS OF CONSCIOUSNESS [None]
  - MEMORY IMPAIRMENT [None]
